FAERS Safety Report 11344947 (Version 2)
Quarter: 2015Q3

REPORT INFORMATION
  Report Type: Report from Study
  Country: US (occurrence: US)
  Receive Date: 20150806
  Receipt Date: 20150817
  Transmission Date: 20151125
  Serious: Yes (Hospitalization, Other)
  Sender: FDA-Public Use
  Company Number: US-GLAXOSMITHKLINE-US2015GSK110085

PATIENT
  Sex: Female
  Weight: 83.9 kg

DRUGS (7)
  1. VANCOMYCIN [Concomitant]
     Active Substance: VANCOMYCIN
     Route: 042
  2. CORTICOSTEROIDS (TRADE NAME UNKNOWN) [Concomitant]
     Dosage: 15 MG, QD
     Dates: start: 20150724, end: 20150726
  3. CORTICOSTEROIDS (TRADE NAME UNKNOWN) [Concomitant]
     Dosage: 10 MG, QD
     Dates: start: 20150726
  4. METHOTREXATE TABLET [Suspect]
     Active Substance: METHOTREXATE
     Indication: SYSTEMIC LUPUS ERYTHEMATOSUS
     Dosage: 15 MG, WE
     Route: 048
     Dates: start: 20150315, end: 20150429
  5. CORTICOSTEROIDS (TRADE NAME UNKNOWN) [Concomitant]
     Dosage: 20 MG, QD
     Dates: start: 20150722, end: 20150724
  6. CORTICOSTEROIDS (TRADE NAME UNKNOWN) [Concomitant]
     Indication: SYSTEMIC LUPUS ERYTHEMATOSUS
     Dosage: 8 MG, QD
     Dates: start: 2014, end: 20150720
  7. CORTICOSTEROIDS (TRADE NAME UNKNOWN) [Concomitant]
     Dosage: 25 MG, QD
     Dates: start: 20150720, end: 20150722

REACTIONS (3)
  - Osteomyelitis acute [Recovering/Resolving]
  - Staphylococcal infection [Recovering/Resolving]
  - C-reactive protein increased [None]

NARRATIVE: CASE EVENT DATE: 20150429
